FAERS Safety Report 24861524 (Version 1)
Quarter: 2025Q1

REPORT INFORMATION
  Report Type: Other
  Country: CA (occurrence: CA)
  Receive Date: 20250120
  Receipt Date: 20250120
  Transmission Date: 20250409
  Serious: Yes (Hospitalization, Other)
  Sender: APOTEX
  Company Number: CA-APOTEX-2025AP000993

PATIENT
  Sex: Female

DRUGS (1)
  1. DASATINIB [Suspect]
     Active Substance: DASATINIB
     Indication: Leukaemia
     Dosage: 70 MILLIGRAM, QD
     Route: 048

REACTIONS (7)
  - Gallbladder oedema [Unknown]
  - Pain in extremity [Unknown]
  - Back pain [Unknown]
  - Nausea [Unknown]
  - Vomiting [Unknown]
  - Abdominal pain upper [Unknown]
  - Viral infection [Unknown]
